FAERS Safety Report 25482171 (Version 1)
Quarter: 2025Q2

REPORT INFORMATION
  Report Type: Spontaneous
  Country: US (occurrence: US)
  Receive Date: 20250626
  Receipt Date: 20250626
  Transmission Date: 20250716
  Serious: No
  Sender: ELI LILLY AND COMPANY
  Company Number: US-ELI_LILLY_AND_COMPANY-US202506017207

PATIENT
  Age: 49 Year
  Sex: Female

DRUGS (1)
  1. ZEPBOUND [Suspect]
     Active Substance: TIRZEPATIDE
     Indication: Product used for unknown indication
     Route: 058

REACTIONS (5)
  - Increased appetite [Recovering/Resolving]
  - Headache [Unknown]
  - Confusional state [Recovering/Resolving]
  - Frustration tolerance decreased [Unknown]
  - Fatigue [Recovering/Resolving]
